FAERS Safety Report 23734057 (Version 1)
Quarter: 2024Q2

REPORT INFORMATION
  Report Type: Spontaneous
  Country: US (occurrence: US)
  Receive Date: 20240412
  Receipt Date: 20240412
  Transmission Date: 20240716
  Serious: No
  Sender: FDA-Public Use
  Company Number: US-Apnar-000152

PATIENT

DRUGS (6)
  1. TERAZOSIN HYDROCHLORIDE [Suspect]
     Active Substance: TERAZOSIN HYDROCHLORIDE
     Indication: Product used for unknown indication
     Route: 065
  2. PENICILLIN V POTASSIUM [Suspect]
     Active Substance: PENICILLIN V POTASSIUM
     Indication: Product used for unknown indication
  3. GLUCOPHAGE [Suspect]
     Active Substance: METFORMIN HYDROCHLORIDE
     Indication: Product used for unknown indication
  4. MORPHINE [Suspect]
     Active Substance: MORPHINE
     Indication: Product used for unknown indication
  5. PHENTERMINE [Suspect]
     Active Substance: PHENTERMINE
     Indication: Product used for unknown indication
  6. PREDNISONE [Suspect]
     Active Substance: PREDNISONE
     Indication: Product used for unknown indication

REACTIONS (1)
  - Drug hypersensitivity [Unknown]
